FAERS Safety Report 5014786-9 (Version None)
Quarter: 2006Q2

REPORT INFORMATION
  Report Type: 
  Country: None (occurrence: None)
  Receive Date: 20060531
  Receipt Date: 20060519
  Transmission Date: 20061013
  Serious: Yes (Other)
  Sender: FDA-Public Use
  Company Number: IT-BRISTOL-MYERS SQUIBB COMPANY-13383013

PATIENT
  Age: 78 Year
  Sex: Male

DRUGS (4)
  1. VEPESID [Suspect]
     Indication: SMALL CELL LUNG CANCER STAGE UNSPECIFIED
     Route: 048
     Dates: start: 20060329, end: 20060410
  2. ALIZAPRIDE HCL [Concomitant]
     Route: 042
  3. DIFLUCAN [Concomitant]
     Route: 048
  4. TAGAMET [Concomitant]
     Route: 048

REACTIONS (1)
  - ANEURYSM [None]
